FAERS Safety Report 9492497 (Version 9)
Quarter: 2014Q1

REPORT INFORMATION
  Report Type: Report from Study
  Country: CA (occurrence: CA)
  Receive Date: 20130830
  Receipt Date: 20140307
  Transmission Date: 20141002
  Serious: Yes (Other)
  Sender: FDA-Public Use
  Company Number: CA-ROCHE-1256786

PATIENT
  Age: 52 Year
  Sex: Female
  Weight: 65 kg

DRUGS (14)
  1. ACTEMRA [Suspect]
     Indication: RHEUMATOID ARTHRITIS
     Route: 042
     Dates: start: 20121019, end: 20140221
  2. ACTEMRA [Suspect]
     Route: 042
     Dates: start: 20130111
  3. RITUXAN [Suspect]
     Indication: RHEUMATOID ARTHRITIS
     Route: 042
     Dates: start: 2008, end: 20110207
  4. RITUXAN [Suspect]
     Route: 042
     Dates: start: 20110124
  5. CELEBREX [Concomitant]
  6. METHOTREXATE [Concomitant]
  7. LYRICA [Concomitant]
  8. FLONASE [Concomitant]
  9. TRAMADOL [Concomitant]
  10. ESTROGEL [Concomitant]
  11. PROMETRIUM [Concomitant]
  12. TYLENOL [Concomitant]
     Route: 048
     Dates: start: 20110124, end: 20110207
  13. SOLU-MEDROL [Concomitant]
     Route: 042
     Dates: start: 20110124, end: 20110207
  14. BENADRYL (CANADA) [Concomitant]
     Route: 048
     Dates: start: 20110124, end: 20110207

REACTIONS (6)
  - Herpes zoster [Recovered/Resolved]
  - Basal cell carcinoma [Recovered/Resolved]
  - Drug ineffective [Unknown]
  - Dental prosthesis placement [Unknown]
  - Tooth infection [Unknown]
  - Nasopharyngitis [Unknown]
